FAERS Safety Report 9153441 (Version 1)
Quarter: 2013Q1

REPORT INFORMATION
  Report Type: Spontaneous
  Country: US (occurrence: None)
  Receive Date: 20130306
  Receipt Date: 20130306
  Transmission Date: 20140127
  Serious: Yes (Hospitalization)
  Sender: FDA-Public Use
  Company Number: None

PATIENT
  Age: 57 Year
  Sex: Female
  Weight: 56.7 kg

DRUGS (2)
  1. WARFARIN [Suspect]
     Indication: THROMBOSIS
     Route: 048
     Dates: start: 20130216, end: 20130301
  2. WARFARIN [Suspect]
     Indication: THROMBOSIS
     Route: 048
     Dates: start: 20130301, end: 20130301

REACTIONS (11)
  - International normalised ratio increased [None]
  - Pain [None]
  - Back pain [None]
  - Abasia [None]
  - Blood pressure increased [None]
  - Nausea [None]
  - Headache [None]
  - Asthenia [None]
  - Thrombophlebitis superficial [None]
  - Renal disorder [None]
  - Swelling [None]
